FAERS Safety Report 17521492 (Version 1)
Quarter: 2020Q1

REPORT INFORMATION
  Report Type: Spontaneous
  Country: AT (occurrence: AT)
  Receive Date: 20200310
  Receipt Date: 20200310
  Transmission Date: 20200409
  Serious: Yes (Life-Threatening, Hospitalization, Other)
  Sender: FDA-Public Use
  Company Number: AT-VELOXIS PHARMACEUTICALS-2020VELAT-000207

PATIENT
  Age: 58 Year
  Sex: Male

DRUGS (4)
  1. SIROLIMUS. [Suspect]
     Active Substance: SIROLIMUS
     Indication: PRODUCT USED FOR UNKNOWN INDICATION
  2. ENVARSUS XR [Suspect]
     Active Substance: TACROLIMUS
     Indication: IMMUNOSUPPRESSANT DRUG THERAPY
  3. PREDNISOLONE. [Suspect]
     Active Substance: PREDNISOLONE
     Indication: IMMUNOSUPPRESSANT DRUG THERAPY
     Dosage: PREDNISOLONE IN A TAPERING SCHEME
  4. AZATHIOPRINE. [Suspect]
     Active Substance: AZATHIOPRINE
     Indication: IMMUNOSUPPRESSANT DRUG THERAPY

REACTIONS (9)
  - Metastatic malignant melanoma [Not Recovered/Not Resolved]
  - Renal atrophy [Recovering/Resolving]
  - Toxicity to various agents [Recovering/Resolving]
  - Chronic kidney disease [Recovering/Resolving]
  - Metastases to lymph nodes [Not Recovered/Not Resolved]
  - Metastases to liver [Not Recovered/Not Resolved]
  - Off label use [Unknown]
  - Renal failure [Recovering/Resolving]
  - Metastases to central nervous system [Not Recovered/Not Resolved]
